FAERS Safety Report 9582439 (Version 1)
Quarter: 2013Q4

REPORT INFORMATION
  Report Type: Spontaneous
  Country: US (occurrence: US)
  Receive Date: 20131002
  Receipt Date: 20131002
  Transmission Date: 20140711
  Serious: No
  Sender: FDA-Public Use
  Company Number: US-AMGEN-USASP2013040463

PATIENT
  Age: 47 Year
  Sex: Male

DRUGS (4)
  1. ENBREL [Suspect]
     Indication: PSORIATIC ARTHROPATHY
     Dosage: 25 MG, QWK
     Route: 065
     Dates: start: 19981201
  2. ENBREL [Suspect]
     Indication: PSORIASIS
  3. SIMPONI [Suspect]
     Dosage: UNK
     Dates: start: 2008, end: 2008
  4. REMICADE [Concomitant]
     Dosage: UNK

REACTIONS (8)
  - Immune system disorder [Not Recovered/Not Resolved]
  - Drug ineffective [Recovered/Resolved]
  - Pain [Recovered/Resolved]
  - Musculoskeletal pain [Not Recovered/Not Resolved]
  - Neck pain [Not Recovered/Not Resolved]
  - Back pain [Not Recovered/Not Resolved]
  - Psoriasis [Recovered/Resolved]
  - Injection site pain [Recovered/Resolved]
